FAERS Safety Report 6902446-6 (Version None)
Quarter: 2010Q3

REPORT INFORMATION
  Report Type: 
  Country: None (occurrence: None)
  Receive Date: 20100803
  Receipt Date: 20080527
  Transmission Date: 20110219
  Serious: No
  Sender: FDA-Public Use
  Company Number: US-PFIZER INC-2008027315

PATIENT
  Sex: Female
  Weight: 72.7 kg

DRUGS (7)
  1. LYRICA [Suspect]
     Route: 048
     Dates: start: 20060101
  2. PROPRANOLOL [Concomitant]
  3. ESTRADIOL [Concomitant]
  4. CIMETIDINE [Concomitant]
  5. LOVASTATIN [Concomitant]
  6. FEXOFENADINE [Concomitant]
  7. CITALOPRAM [Concomitant]

REACTIONS (6)
  - CARDIAC FLUTTER [None]
  - CONSTIPATION [None]
  - DRUG INEFFECTIVE [None]
  - DRUG INTOLERANCE [None]
  - FLATULENCE [None]
  - SWELLING [None]
